FAERS Safety Report 4764390-2 (Version None)
Quarter: 2005Q3

REPORT INFORMATION
  Report Type: 
  Country: None (occurrence: None)
  Receive Date: 20050907
  Receipt Date: 20050629
  Transmission Date: 20060218
  Serious: Yes (Hospitalization, Other)
  Sender: FDA-Public Use
  Company Number: 2005092528

PATIENT
  Age: 35 Year
  Sex: Female

DRUGS (13)
  1. SULFASALAZINE [Suspect]
     Indication: COLITIS ULCERATIVE
     Dosage: 1.5 GRAM (500 MG, 3 IN 1 D), ORAL
     Route: 048
     Dates: end: 20041021
  2. PROPYLTHIOURACIL [Concomitant]
  3. HERBAL PREPARATION (HERBAL PREPARATION) [Concomitant]
  4. RITODRINE HCL [Concomitant]
  5. FESIN (SACCHARATED IRON OXIDE) [Concomitant]
  6. SOLANTAL (TIARAMIDE HYDROCHLORIDE) [Concomitant]
  7. SAIREI-TO (HERBAL EXTRACTS NOS) [Concomitant]
  8. TETUCUR (FERROPOLIMALER) [Concomitant]
  9. LUGOL (IODINE, POTASSIUM IODIDE) [Concomitant]
  10. MAGNESIUM SULFATE [Concomitant]
  11. BETAMETHASONE [Concomitant]
  12. PYRINAZIN (PARACETAMOL) [Concomitant]
  13. SPIROPENT (CLENBUTEROL HYDROCHLORIDE) [Concomitant]

REACTIONS (12)
  - ABORTION THREATENED [None]
  - ANAEMIA FOLATE DEFICIENCY [None]
  - CAESAREAN SECTION [None]
  - DRUG EXPOSURE DURING PREGNANCY [None]
  - HYPOCHROMIC ANAEMIA [None]
  - IN VITRO FERTILISATION [None]
  - NECK PAIN [None]
  - ORAL INTAKE REDUCED [None]
  - PANCYTOPENIA [None]
  - TWIN PREGNANCY [None]
  - UTERINE CONTRACTIONS ABNORMAL [None]
  - VOMITING [None]
